FAERS Safety Report 4740361-7 (Version None)
Quarter: 2005Q3

REPORT INFORMATION
  Report Type: 
  Country: None (occurrence: None)
  Receive Date: 20050805
  Receipt Date: 20050503
  Transmission Date: 20060218
  Serious: Yes (Hospitalization)
  Sender: FDA-Public Use
  Company Number: PAR_0009_2005

PATIENT
  Age: 78 Year
  Sex: Male

DRUGS (8)
  1. ISOPTIN [Suspect]
     Dosage: 240 MG QDAY PO
     Route: 048
     Dates: end: 20050223
  2. ISOPTIN [Suspect]
     Dosage: DF Q1HR IV
     Route: 042
     Dates: start: 20050223, end: 20050228
  3. DEPAKENE [Suspect]
     Dosage: 500 MG BID PO
     Route: 048
     Dates: start: 20040101, end: 20050223
  4. DEPAKENE [Suspect]
     Dosage: 100 MG/ML
     Dates: start: 20050223, end: 20050228
  5. MIANSERIN HYDROCHLORIDE [Suspect]
     Indication: DEPRESSION
     Dosage: 30 MG QDAY PO
     Route: 048
     Dates: start: 20050111, end: 20050222
  6. MEMANTINE [Suspect]
     Indication: ABNORMAL BEHAVIOUR
     Dosage: 20 MG PO
     Route: 048
     Dates: start: 20050211, end: 20050217
  7. CLOPIDOGREL BISULFATE [Suspect]
     Dosage: 75 MG QDAY PO
     Route: 048
     Dates: end: 20050222
  8. CLOZAPINE [Suspect]
     Dosage: 50 MG QDAY PO
     Route: 048
     Dates: start: 20041115, end: 20050217

REACTIONS (4)
  - ABNORMAL BEHAVIOUR [None]
  - DEPRESSION [None]
  - INFLAMMATION [None]
  - NORMOCHROMIC NORMOCYTIC ANAEMIA [None]
